FAERS Safety Report 6154073-9 (Version None)
Quarter: 2009Q2

REPORT INFORMATION
  Report Type: 
  Country: None (occurrence: None)
  Receive Date: 20090414
  Receipt Date: 20090331
  Transmission Date: 20091009
  Serious: Yes (Hospitalization, Other)
  Sender: FDA-Public Use
  Company Number: FR-ROCHE-622237

PATIENT
  Sex: Female
  Weight: 55 kg

DRUGS (1)
  1. LARIAM [Suspect]
     Indication: MALARIA PROPHYLAXIS
     Route: 048
     Dates: start: 20090220, end: 20090227

REACTIONS (4)
  - BLOOD PRESSURE INCREASED [None]
  - DEHYDRATION [None]
  - GASTRITIS [None]
  - VESTIBULAR NEURONITIS [None]
